APPROVED DRUG PRODUCT: LAMIVUDINE
Active Ingredient: LAMIVUDINE
Strength: 100MG
Dosage Form/Route: TABLET;ORAL
Application: A204002 | Product #001
Applicant: AUROBINDO PHARMA USA INC
Approved: Dec 31, 2014 | RLD: No | RS: No | Type: DISCN